FAERS Safety Report 21937802 (Version 4)
Quarter: 2025Q4

REPORT INFORMATION
  Report Type: Report from Study
  Country: US (occurrence: US)
  Receive Date: 20230201
  Receipt Date: 20251209
  Transmission Date: 20260118
  Serious: Yes (Hospitalization, Other)
  Sender: JAZZ
  Company Number: US-JAZZ-2023-US-002111

PATIENT
  Sex: Female

DRUGS (2)
  1. EPIDIOLEX [Suspect]
     Active Substance: CANNABIDIOL
     Indication: Product used for unknown indication
     Dosage: 4.5 UNKNOWN, BID
  2. EPIDIOLEX [Suspect]
     Active Substance: CANNABIDIOL
     Dosage: 4.5 MILLILITER, BID

REACTIONS (5)
  - Thoracic vertebral fracture [Unknown]
  - Joint dislocation [Recovering/Resolving]
  - Seizure [Recovering/Resolving]
  - Back pain [Recovering/Resolving]
  - Dyspnoea [Unknown]
